FAERS Safety Report 7860458-2 (Version None)
Quarter: 2011Q4

REPORT INFORMATION
  Report Type: 
  Country: None (occurrence: None)
  Receive Date: 20111027
  Receipt Date: 20111018
  Transmission Date: 20120403
  Serious: Yes (Other)
  Sender: FDA-Public Use
  Company Number: US-ASTRAZENECA-2011SE49827

PATIENT
  Age: 42 Year
  Sex: Female
  Weight: 108.9 kg

DRUGS (8)
  1. SEROQUEL XR [Suspect]
     Dosage: CRUSHED 500 MG
     Route: 048
     Dates: start: 20110603
  2. SEROQUEL XR [Suspect]
     Dosage: CRUSHED 150 MG
     Route: 048
     Dates: start: 20110604, end: 20110604
  3. XANAX [Concomitant]
     Indication: ANXIETY
     Dosage: PRN
  4. PREVACID [Concomitant]
     Indication: BARRETT'S OESOPHAGUS
     Route: 048
     Dates: start: 20110605
  5. SEROQUEL XR [Suspect]
     Route: 048
  6. SEROQUEL XR [Suspect]
     Indication: BIPOLAR I DISORDER
     Route: 048
  7. SEROQUEL XR [Suspect]
     Dosage: TOTAL UNCRUSHED
     Route: 048
     Dates: start: 20110920, end: 20110922
  8. XANAX [Concomitant]
     Indication: MANIA
     Dosage: PRN

REACTIONS (13)
  - ABDOMINAL DISCOMFORT [None]
  - SEDATION [None]
  - DYSPHAGIA [None]
  - FEELING ABNORMAL [None]
  - HEADACHE [None]
  - UNRESPONSIVE TO STIMULI [None]
  - ADVERSE EVENT [None]
  - AFFECT LABILITY [None]
  - SOMNOLENCE [None]
  - HYPERSOMNIA [None]
  - WRONG TECHNIQUE IN DRUG USAGE PROCESS [None]
  - NAUSEA [None]
  - DISORIENTATION [None]
